FAERS Safety Report 20795763 (Version 1)
Quarter: 2022Q2

REPORT INFORMATION
  Report Type: Spontaneous
  Country: US (occurrence: US)
  Receive Date: 20220506
  Receipt Date: 20220506
  Transmission Date: 20220720
  Serious: No
  Sender: FDA-Public Use
  Company Number: US-MEDICUREINC-2022USSPO00008

PATIENT
  Age: 93 Year
  Sex: Male

DRUGS (1)
  1. ZYPITAMAG [Suspect]
     Active Substance: PITAVASTATIN
     Indication: Product used for unknown indication
     Dates: start: 202112

REACTIONS (2)
  - Myalgia [Unknown]
  - Arthralgia [Unknown]
